FAERS Safety Report 20510870 (Version 2)
Quarter: 2022Q1

REPORT INFORMATION
  Report Type: Spontaneous
  Country: FR (occurrence: None)
  Receive Date: 20220224
  Receipt Date: 20220325
  Transmission Date: 20220424
  Serious: Yes (Other)
  Sender: FDA-Public Use
  Company Number: FR-ROCHE-2900494

PATIENT
  Age: 67 Year
  Sex: Female
  Weight: 90 kg

DRUGS (1)
  1. XELODA [Suspect]
     Active Substance: CAPECITABINE
     Indication: Breast cancer metastatic
     Dosage: 4 TABLETS OF 500 MG IN THE MORNING AND EVENING
     Route: 048
     Dates: end: 20220207

REACTIONS (8)
  - Dental caries [Unknown]
  - Tooth fracture [Unknown]
  - Metastasis [Unknown]
  - Abdominal pain upper [Unknown]
  - Oesophageal disorder [Unknown]
  - Off label use [Unknown]
  - Fatigue [Unknown]
  - Pain in extremity [Unknown]

NARRATIVE: CASE EVENT DATE: 20211021
